FAERS Safety Report 5752146-3 (Version None)
Quarter: 2008Q2

REPORT INFORMATION
  Report Type: 
  Country: None (occurrence: None)
  Receive Date: 20080527
  Receipt Date: 20080508
  Transmission Date: 20081010
  Serious: Yes (Hospitalization)
  Sender: FDA-Public Use
  Company Number: 2008AL004665

PATIENT
  Age: 84 Year
  Sex: Female
  Weight: 56.6996 kg

DRUGS (7)
  1. DIGOXIN [Suspect]
     Indication: HEART RATE INCREASED
     Dosage: .125 MG DAILY PO
     Route: 048
  2. BENICAR [Concomitant]
  3. FUROSIMIDE [Concomitant]
  4. POTASSIUM CHLORIDE [Concomitant]
  5. DOCUSATE [Concomitant]
  6. METOCLOPRIMIDE [Concomitant]
  7. SYNAMET [Concomitant]

REACTIONS (1)
  - CARDIOACTIVE DRUG LEVEL INCREASED [None]
